FAERS Safety Report 7902583-3 (Version None)
Quarter: 2011Q4

REPORT INFORMATION
  Report Type: 
  Country: None (occurrence: None)
  Receive Date: 20111108
  Receipt Date: 20111024
  Transmission Date: 20120403
  Serious: Yes (Other)
  Sender: FDA-Public Use
  Company Number: IN-WATSON-2011-17898

PATIENT
  Age: 3 Year
  Sex: Male
  Weight: 12 kg

DRUGS (1)
  1. VALPROATE SODIUM [Suspect]
     Indication: CONVULSION
     Dosage: 2.5 MG, TID

REACTIONS (8)
  - VOMITING [None]
  - HYPERAMMONAEMIC ENCEPHALOPATHY [None]
  - HYPOGLYCAEMIA [None]
  - PYREXIA [None]
  - METABOLIC ACIDOSIS [None]
  - CONVULSION [None]
  - AMMONIA INCREASED [None]
  - SOMNOLENCE [None]
